FAERS Safety Report 10438568 (Version 1)
Quarter: 2014Q3

REPORT INFORMATION
  Report Type: Report from Study
  Country: BR (occurrence: BR)
  Receive Date: 20140908
  Receipt Date: 20140908
  Transmission Date: 20150326
  Serious: Yes (Hospitalization, Other)
  Sender: FDA-Public Use
  Company Number: PHHY2014BR115173

PATIENT
  Sex: Female
  Weight: 48 kg

DRUGS (12)
  1. DIOVAN HCT [Suspect]
     Active Substance: HYDROCHLOROTHIAZIDE\VALSARTAN
     Indication: HYPERTENSION
  2. VALSARTAN. [Concomitant]
     Active Substance: VALSARTAN
     Indication: CARDIAC DISORDER
  3. DIOVAN HCT [Suspect]
     Active Substance: HYDROCHLOROTHIAZIDE\VALSARTAN
     Indication: CARDIAC DISORDER
     Dosage: 1 DF, UNK
     Route: 048
  4. LOZEPREL [Concomitant]
     Active Substance: OMEPRAZOLE
     Indication: DRUG INTOLERANCE
     Dosage: 20 MG, UNK
  5. PURAN [Concomitant]
     Active Substance: LEVOTHYROXINE SODIUM
     Indication: THYROID DISORDER
     Dosage: 1 DF, QD (EARLY MORNING)
  6. VALSARTAN. [Concomitant]
     Active Substance: VALSARTAN
     Indication: HYPERTENSION
  7. CARVEDILOL. [Concomitant]
     Active Substance: CARVEDILOL
     Indication: CARDIAC DISORDER
     Dosage: UNK DF (12/5MG), UNK
  8. VALSARTAN. [Concomitant]
     Active Substance: VALSARTAN
     Indication: ISCHAEMIC HEART DISEASE PROPHYLAXIS
     Dosage: UNK DF (320/25MG), UNK
  9. OSSOTRAT-D [Concomitant]
     Indication: OSTEOPOROSIS
     Dosage: 600 DF, UNK
  10. SOMALGIN [Concomitant]
     Active Substance: ASPIRIN\DIHYDROXYALUMINUM AMINOACETATE ANHYDROUS\MAGNESIUM CARBONATE
     Indication: HYPERTENSION
  11. SOMALGIN [Concomitant]
     Active Substance: ASPIRIN\DIHYDROXYALUMINUM AMINOACETATE ANHYDROUS\MAGNESIUM CARBONATE
     Indication: ISCHAEMIC HEART DISEASE PROPHYLAXIS
     Dosage: 1 UKN, QD
  12. SOMALGIN [Concomitant]
     Active Substance: ASPIRIN\DIHYDROXYALUMINUM AMINOACETATE ANHYDROUS\MAGNESIUM CARBONATE
     Indication: CARDIAC DISORDER

REACTIONS (5)
  - Cardiac failure [Recovering/Resolving]
  - Cerebrovascular accident [Recovering/Resolving]
  - Lung infection [Recovering/Resolving]
  - Endocarditis [Recovering/Resolving]
  - Memory impairment [Recovering/Resolving]
